FAERS Safety Report 4943509-4 (Version None)
Quarter: 2006Q1

REPORT INFORMATION
  Report Type: 
  Country: None (occurrence: None)
  Receive Date: 20060309
  Receipt Date: 20060223
  Transmission Date: 20060701
  Serious: Yes (Other)
  Sender: FDA-Public Use
  Company Number: PAR_0528_2006

PATIENT
  Age: 18 Year
  Sex: Female

DRUGS (1)
  1. IBUPROFEN [Suspect]
     Dosage: 5 TAB ONCE PO
     Route: 048
     Dates: start: 20060223

REACTIONS (3)
  - CHEST PAIN [None]
  - HAEMOPTYSIS [None]
  - SOMNOLENCE [None]
